FAERS Safety Report 8294436-9 (Version None)
Quarter: 2012Q2

REPORT INFORMATION
  Report Type: 
  Country: None (occurrence: None)
  Receive Date: 20120417
  Receipt Date: 20120412
  Transmission Date: 20120825
  Serious: Yes (Hospitalization, Other)
  Sender: FDA-Public Use
  Company Number: ADR-2011-10888

PATIENT
  Age: 61 Year
  Sex: Male

DRUGS (2)
  1. LIORESAL [Suspect]
     Indication: MUSCLE SPASTICITY
     Dosage: SEE B5
  2. MORPHINE [Concomitant]

REACTIONS (5)
  - IMPLANT SITE PUSTULES [None]
  - IMPLANT SITE ERYTHEMA [None]
  - DEVICE RELATED INFECTION [None]
  - SUTURE RELATED COMPLICATION [None]
  - MEDICAL DEVICE COMPLICATION [None]
